FAERS Safety Report 9293841 (Version 1)
Quarter: 2013Q2

REPORT INFORMATION
  Report Type: Spontaneous
  Country: IT (occurrence: IT)
  Receive Date: 20130516
  Receipt Date: 20130516
  Transmission Date: 20140414
  Serious: Yes (Other)
  Sender: FDA-Public Use
  Company Number: PHHY2013IT048219

PATIENT
  Age: 82 Year
  Sex: Female

DRUGS (1)
  1. AMPICILLIN [Suspect]
     Indication: PULMONARY FIBROSIS

REACTIONS (4)
  - Renal tubular disorder [Recovered/Resolved]
  - Renal failure acute [Recovered/Resolved]
  - Nephrotic syndrome [Recovered/Resolved]
  - Drug hypersensitivity [Unknown]
